FAERS Safety Report 17010212 (Version 2)
Quarter: 2019Q4

REPORT INFORMATION
  Report Type: Spontaneous
  Country: US (occurrence: US)
  Receive Date: 20191108
  Receipt Date: 20191127
  Transmission Date: 20200122
  Serious: No
  Sender: FDA-Public Use
  Company Number: US-PFIZER INC-2019478023

PATIENT
  Age: 80 Year
  Sex: Female
  Weight: 81.65 kg

DRUGS (4)
  1. FLECTOR [Suspect]
     Active Substance: DICLOFENAC EPOLAMINE
     Indication: ARTHRITIS
     Dosage: UNK
     Dates: start: 20191010, end: 20191011
  2. DICLOFENAC EPOLAMINE [Suspect]
     Active Substance: DICLOFENAC EPOLAMINE
     Indication: ARTHRITIS
     Dosage: UNK (12 HOURS ON AND 12 HOURS OFF)
     Dates: start: 20190601
  3. DICLOFENAC EPOLAMINE [Suspect]
     Active Substance: DICLOFENAC EPOLAMINE
     Indication: ROTATOR CUFF SYNDROME
  4. FLECTOR [Suspect]
     Active Substance: DICLOFENAC EPOLAMINE
     Indication: ROTATOR CUFF SYNDROME

REACTIONS (2)
  - Application site pruritus [Unknown]
  - Application site rash [Recovering/Resolving]

NARRATIVE: CASE EVENT DATE: 2019
